FAERS Safety Report 5615364-0 (Version None)
Quarter: 2008Q1

REPORT INFORMATION
  Report Type: 
  Country: None (occurrence: None)
  Receive Date: 20080201
  Receipt Date: 20080124
  Transmission Date: 20080703
  Serious: Yes (Hospitalization, Other)
  Sender: FDA-Public Use
  Company Number: 2008SP001971

PATIENT
  Sex: Female

DRUGS (3)
  1. INTEGRILIN [Suspect]
     Indication: CORONARY ARTERIAL STENT INSERTION
     Dosage: INDRP
     Dates: start: 20080124, end: 20080124
  2. TENECTEPLASE [Suspect]
     Indication: CORONARY ARTERIAL STENT INSERTION
  3. LOVENOX [Suspect]
     Indication: CORONARY ARTERIAL STENT INSERTION

REACTIONS (6)
  - GINGIVAL BLEEDING [None]
  - HAEMATEMESIS [None]
  - HAEMOPTYSIS [None]
  - PLEURAL EFFUSION [None]
  - PULMONARY HAEMORRHAGE [None]
  - PULMONARY THROMBOSIS [None]
